FAERS Safety Report 4966676-5 (Version None)
Quarter: 2006Q1

REPORT INFORMATION
  Report Type: 
  Country: None (occurrence: None)
  Receive Date: 20060201
  Receipt Date: 20051109
  Transmission Date: 20060701
  Serious: No
  Sender: FDA-Public Use
  Company Number: 2005PV005121

PATIENT
  Sex: Female

DRUGS (7)
  1. BYETTA [Suspect]
     Indication: DIABETES MELLITUS NON-INSULIN-DEPENDENT
     Dosage: 10 MCG; BID; SC;  5 MCG; BID; SC
     Route: 058
     Dates: start: 20050901, end: 20051001
  2. BYETTA [Suspect]
     Indication: DIABETES MELLITUS NON-INSULIN-DEPENDENT
     Dosage: 10 MCG; BID; SC;  5 MCG; BID; SC
     Route: 058
     Dates: start: 20051001
  3. METFORMIN [Concomitant]
  4. AVANDIA [Concomitant]
  5. AMARYL [Concomitant]
  6. HUMALOG MIX 75/25 [Concomitant]
  7. LIPITOR [Concomitant]

REACTIONS (3)
  - CONSTIPATION [None]
  - NAUSEA [None]
  - VOMITING [None]
